FAERS Safety Report 8191768-X (Version None)
Quarter: 2012Q1

REPORT INFORMATION
  Report Type: 
  Country: None (occurrence: None)
  Receive Date: 20120307
  Receipt Date: 20120221
  Transmission Date: 20120608
  Serious: Yes (Other)
  Sender: FDA-Public Use
  Company Number: MA-FRI-1000028628

PATIENT
  Age: 35 Year
  Sex: Female

DRUGS (5)
  1. CARBIMAZOLE [Suspect]
     Indication: HYPERTHYROIDISM
     Dosage: 45 MG
  2. CARBIMAZOLE [Suspect]
     Indication: BASEDOW'S DISEASE
  3. CARBIMAZOLE [Suspect]
  4. CARBIMAZOLE [Suspect]
     Dosage: 30 MG
  5. PROPRANOLOL HYDROCHLORIDE [Suspect]

REACTIONS (1)
  - IRON DEFICIENCY ANAEMIA [None]
